FAERS Safety Report 8073175-3 (Version None)
Quarter: 2012Q1

REPORT INFORMATION
  Report Type: 
  Country: None (occurrence: None)
  Receive Date: 20120126
  Receipt Date: 20120116
  Transmission Date: 20120608
  Serious: Yes (Hospitalization)
  Sender: FDA-Public Use
  Company Number: US-ELI_LILLY_AND_COMPANY-US201201004758

PATIENT
  Sex: Female

DRUGS (21)
  1. ASPIRIN [Concomitant]
     Dosage: UNK, UNKNOWN
     Route: 065
  2. LIDODERM [Concomitant]
     Dosage: UNK, UNKNOWN
     Route: 065
  3. PRILOSEC [Concomitant]
     Dosage: UNK, UNKNOWN
     Route: 065
  4. OXYCONTIN [Concomitant]
     Dosage: UNK, UNKNOWN
     Route: 065
  5. FOLVITE [Concomitant]
     Dosage: UNK, UNKNOWN
     Route: 065
  6. LASIX [Concomitant]
     Dosage: UNK, UNKNOWN
     Route: 065
  7. NEURONTIN [Concomitant]
     Dosage: UNK, UNKNOWN
     Route: 065
  8. POTASSIUM CHLORIDE [Concomitant]
     Dosage: UNK, UNKNOWN
     Route: 065
  9. APRESOLINE [Concomitant]
     Dosage: UNK, UNKNOWN
     Route: 065
  10. SYNTHROID [Concomitant]
     Dosage: UNK, UNKNOWN
     Route: 065
  11. MULTIPLE VITAMIN [Concomitant]
     Dosage: UNK, UNKNOWN
     Route: 065
  12. BYSTOLIC [Concomitant]
     Dosage: UNK, UNKNOWN
     Route: 065
  13. WELLBUTRIN [Concomitant]
     Dosage: UNK, UNKNOWN
     Route: 065
  14. FORTEO [Suspect]
     Indication: OSTEOPOROSIS
     Dosage: 20 UG, QD
     Route: 065
  15. COLCHICINE [Concomitant]
     Dosage: UNK, UNKNOWN
     Route: 065
  16. CLARITIN [Concomitant]
     Dosage: UNK, UNKNOWN
     Route: 065
  17. MAG-OX [Concomitant]
     Dosage: UNK, UNKNOWN
     Route: 065
  18. PREDNISONE TAB [Concomitant]
     Dosage: UNK, UNKNOWN
     Route: 065
  19. SENOKOT [Concomitant]
     Dosage: UNK, UNKNOWN
     Route: 065
  20. VITAMIN D [Concomitant]
     Dosage: UNK, UNKNOWN
     Route: 065
  21. OXYCODONE HCL [Concomitant]
     Dosage: UNK, PRN
     Route: 065

REACTIONS (2)
  - FALL [None]
  - PAIN MANAGEMENT [None]
